FAERS Safety Report 12608351 (Version 2)
Quarter: 2017Q1

REPORT INFORMATION
  Report Type: Spontaneous
  Country: US (occurrence: US)
  Receive Date: 20160729
  Receipt Date: 20170112
  Transmission Date: 20170428
  Serious: No
  Sender: FDA-Public Use
  Company Number: US-DEPOMED, INC.-US-2016DEP007927

PATIENT

DRUGS (4)
  1. FENTANYL CITRATE. [Suspect]
     Active Substance: FENTANYL CITRATE
     Indication: BACK DISORDER
  2. FENTANYL CITRATE. [Suspect]
     Active Substance: FENTANYL CITRATE
     Indication: ARTHRITIS
     Dosage: 100 ?G, QID
     Route: 045
     Dates: start: 20150506
  3. FENTANYL CITRATE. [Suspect]
     Active Substance: FENTANYL CITRATE
     Indication: OFF LABEL USE
  4. OXYCODONE [Concomitant]
     Active Substance: OXYCODONE
     Indication: PRODUCT USED FOR UNKNOWN INDICATION
     Dosage: DF

REACTIONS (4)
  - Drug ineffective for unapproved indication [Recovered/Resolved]
  - Product physical issue [Recovered/Resolved]
  - Product container issue [Recovered/Resolved]
  - Product packaging quantity issue [Recovered/Resolved]

NARRATIVE: CASE EVENT DATE: 20150608
